FAERS Safety Report 16272033 (Version 1)
Quarter: 2019Q2

REPORT INFORMATION
  Report Type: Spontaneous
  Country: CA (occurrence: CA)
  Receive Date: 20190503
  Receipt Date: 20190503
  Transmission Date: 20190711
  Serious: Yes (Hospitalization)
  Sender: FDA-Public Use
  Company Number: CA-PFIZER INC-2019089639

PATIENT
  Age: 76 Year
  Sex: Female

DRUGS (3)
  1. ADVIL 12 HOUR [Suspect]
     Active Substance: IBUPROFEN
     Indication: RHEUMATOID ARTHRITIS
  2. ADVIL 12 HOUR [Suspect]
     Active Substance: IBUPROFEN
     Indication: OSTEOARTHRITIS
  3. ADVIL 12 HOUR [Suspect]
     Active Substance: IBUPROFEN
     Indication: PAIN
     Dosage: UNK
     Dates: start: 20190218, end: 20190226

REACTIONS (5)
  - Diarrhoea [Recovered/Resolved]
  - Nervousness [Recovered/Resolved]
  - Muscle spasms [Recovered/Resolved]
  - Tremor [Unknown]
  - Flatulence [Recovered/Resolved]

NARRATIVE: CASE EVENT DATE: 2019
